FAERS Safety Report 5368841-4 (Version None)
Quarter: 2007Q2

REPORT INFORMATION
  Report Type: 
  Country: None (occurrence: None)
  Receive Date: 20070530
  Receipt Date: 20070523
  Transmission Date: 20071010
  Serious: Yes (Life-Threatening, Hospitalization, Disabling, Other)
  Sender: FDA-Public Use
  Company Number: 200711822

PATIENT
  Age: 15 Year
  Sex: Male
  Weight: 67 kg

DRUGS (4)
  1. VIVAGLOBIN [Suspect]
     Indication: HYPOGAMMAGLOBULINAEMIA
     Dosage: 9.6 G QW SC
     Route: 058
     Dates: start: 20060728, end: 20061019
  2. ADVAIR DISKUS 100/50 [Concomitant]
  3. BACTRIM [Concomitant]
  4. NASONEX [Concomitant]

REACTIONS (3)
  - CHRONIC HEPATITIS [None]
  - COUGH [None]
  - DIARRHOEA [None]
